FAERS Safety Report 21111413 (Version 1)
Quarter: 2022Q3

REPORT INFORMATION
  Report Type: Spontaneous
  Country: CA (occurrence: CA)
  Receive Date: 20220721
  Receipt Date: 20220721
  Transmission Date: 20221027
  Serious: Yes (Other)
  Sender: FDA-Public Use
  Company Number: None

PATIENT
  Age: 84 Year
  Sex: Female

DRUGS (1)
  1. PACLITAXEL [Suspect]
     Active Substance: PACLITAXEL
     Indication: Chemotherapy
     Dosage: INTRAVENOUS DRIP, LIQUID INTRAVENOUS
     Route: 042

REACTIONS (3)
  - Depressed level of consciousness [Unknown]
  - Dyskinesia [Unknown]
  - Gaze palsy [Unknown]
